FAERS Safety Report 5266939-2 (Version None)
Quarter: 2007Q1

REPORT INFORMATION
  Report Type: 
  Country: None (occurrence: None)
  Receive Date: 20070316
  Receipt Date: 20070307
  Transmission Date: 20070707
  Serious: Yes (Death, Other)
  Sender: FDA-Public Use
  Company Number: FRWYE923807MAR07

PATIENT
  Age: 83 Year
  Sex: Female
  Weight: 65 kg

DRUGS (4)
  1. EFFEXOR [Suspect]
     Indication: DEPRESSION
     Dosage: 100 MG TOTAL DAILY
     Route: 048
     Dates: start: 20070112
  2. ACETAMINOPHEN AND TRAMADOL HCL [Concomitant]
     Indication: BACK PAIN
     Dosage: 4 TABLETS TOTAL DAILY
     Route: 048
     Dates: start: 20070109
  3. SEROPRAM [Concomitant]
     Indication: DEPRESSION
     Dosage: UNKNOWN
  4. TRAMADOL HCL [Concomitant]
     Indication: BACK PAIN
     Dosage: 200 MG TOTAL DAILY
     Dates: start: 20070109

REACTIONS (2)
  - HEPATITIS FULMINANT [None]
  - RENAL FAILURE [None]
